FAERS Safety Report 12310427 (Version 1)
Quarter: 2016Q2

REPORT INFORMATION
  Report Type: Spontaneous
  Country: US (occurrence: None)
  Receive Date: 20160426
  Receipt Date: 20160426
  Transmission Date: 20160815
  Serious: Yes (Hospitalization, Disabling, Other)
  Sender: FDA-Public Use
  Company Number: None

PATIENT
  Age: 31 Year
  Sex: Female
  Weight: 68.04 kg

DRUGS (4)
  1. SERTRALINE, 100 MG [Suspect]
     Active Substance: SERTRALINE HYDROCHLORIDE
     Indication: ANXIETY
     Dosage: 2 TABLET(S) IN THE MORNING TAKEN BY MOUTH
     Route: 048
  2. SERTRALINE, 100 MG [Suspect]
     Active Substance: SERTRALINE HYDROCHLORIDE
     Indication: DEPRESSION
     Dosage: 2 TABLET(S) IN THE MORNING TAKEN BY MOUTH
     Route: 048
  3. MULTIVITAMIN [Concomitant]
     Active Substance: VITAMINS
  4. ZOLOFT [Suspect]
     Active Substance: SERTRALINE HYDROCHLORIDE

REACTIONS (6)
  - Poor quality sleep [None]
  - Depression [None]
  - Constipation [None]
  - Scleroderma [None]
  - Fatigue [None]
  - Disease recurrence [None]

NARRATIVE: CASE EVENT DATE: 20160301
